FAERS Safety Report 5755813-0 (Version None)
Quarter: 2008Q2

REPORT INFORMATION
  Report Type: 
  Country: None (occurrence: None)
  Receive Date: 20080528
  Receipt Date: 20080515
  Transmission Date: 20081010
  Serious: Yes (Other)
  Sender: FDA-Public Use
  Company Number: LTI2008A00097

PATIENT
  Age: 43 Year
  Sex: Male

DRUGS (6)
  1. OGAST 30 MG (LANSOPRAZOLE) (TABLETS) [Suspect]
     Indication: ABDOMINAL PAIN UPPER
     Dosage: 30 MG (30 MG, 1 IN 1 D); ORAL
     Route: 048
     Dates: start: 20030624, end: 20080401
  2. OGAST 30 MG (LANSOPRAZOLE) (TABLETS) [Suspect]
     Indication: GASTRIC ULCER
     Dosage: 30 MG (30 MG, 1 IN 1 D); ORAL
     Route: 048
     Dates: start: 20030624, end: 20080401
  3. OGAST 30 MG (LANSOPRAZOLE) (TABLETS) [Suspect]
     Indication: GASTROOESOPHAGEAL REFLUX DISEASE
     Dosage: 30 MG (30 MG, 1 IN 1 D); ORAL
     Route: 048
     Dates: start: 20030624, end: 20080401
  4. OGAST 15 MG (LANSOPRAZOLE) (TABLETS) [Suspect]
     Indication: ABDOMINAL PAIN UPPER
     Dosage: 15 MG 915 MG, 1 IN 1 D); ORAL, FOR DAYS
     Route: 048
     Dates: start: 20030318, end: 20030624
  5. OGAST 15 MG (LANSOPRAZOLE) (TABLETS) [Suspect]
     Indication: GASTRIC ULCER
     Dosage: 15 MG 915 MG, 1 IN 1 D); ORAL, FOR DAYS
     Route: 048
     Dates: start: 20030318, end: 20030624
  6. OGAST 15 MG (LANSOPRAZOLE) (TABLETS) [Suspect]
     Indication: GASTROOESOPHAGEAL REFLUX DISEASE
     Dosage: 15 MG 915 MG, 1 IN 1 D); ORAL, FOR DAYS
     Route: 048
     Dates: start: 20030318, end: 20030624

REACTIONS (2)
  - ERECTILE DYSFUNCTION [None]
  - HYPERPROLACTINAEMIA [None]
